FAERS Safety Report 5423648-4 (Version None)
Quarter: 2007Q3

REPORT INFORMATION
  Report Type: 
  Country: None (occurrence: None)
  Receive Date: 20070823
  Receipt Date: 20070820
  Transmission Date: 20080115
  Serious: Yes (Hospitalization, Other)
  Sender: FDA-Public Use
  Company Number: A0656607A

PATIENT
  Age: 43 Year
  Sex: Female
  Weight: 58.2 kg

DRUGS (6)
  1. EPZICOM [Suspect]
     Indication: HIV INFECTION
     Route: 048
     Dates: start: 20070104, end: 20070215
  2. KALETRA [Concomitant]
     Indication: HIV INFECTION
     Route: 048
     Dates: start: 20070215, end: 20070215
  3. VALACYCLOVIR [Concomitant]
     Indication: HERPES ZOSTER
     Dosage: 1000MG UNKNOWN
     Route: 048
     Dates: start: 20060321
  4. ZOLOFT [Concomitant]
     Indication: DEPRESSION
     Dosage: 50MG UNKNOWN
     Route: 048
     Dates: start: 20060620
  5. ORTHO TRI-CYCLEN [Concomitant]
     Route: 048
     Dates: start: 20030101
  6. NELFINAVIR [Concomitant]
     Indication: DRUG USE FOR UNKNOWN INDICATION
     Route: 065
     Dates: start: 20070104, end: 20070115

REACTIONS (10)
  - ABDOMINAL PAIN [None]
  - CHEST PAIN [None]
  - DRUG HYPERSENSITIVITY [None]
  - HEADACHE [None]
  - MYALGIA [None]
  - PRURITUS [None]
  - PYREXIA [None]
  - RIB FRACTURE [None]
  - SKIN BURNING SENSATION [None]
  - VOMITING [None]
